FAERS Safety Report 5529649-X (Version None)
Quarter: 2007Q4

REPORT INFORMATION
  Report Type: 
  Country: None (occurrence: None)
  Receive Date: 20071129
  Receipt Date: 20071119
  Transmission Date: 20080405
  Serious: Yes (Other)
  Sender: FDA-Public Use
  Company Number: US-PFIZER INC-2007097430

PATIENT
  Sex: Female

DRUGS (5)
  1. LIPITOR [Suspect]
     Indication: BLOOD CHOLESTEROL INCREASED
     Dates: start: 20050101, end: 20070101
  2. VALSARTAN [Suspect]
     Indication: HYPERTENSION
  3. POTASSIUM CHLORIDE [Concomitant]
  4. COLCHICINE [Concomitant]
  5. CATAPRES [Concomitant]

REACTIONS (4)
  - BLOOD POTASSIUM DECREASED [None]
  - HYPERTENSION [None]
  - MYALGIA [None]
  - PERICARDITIS [None]
